FAERS Safety Report 8073242-4 (Version None)
Quarter: 2012Q1

REPORT INFORMATION
  Report Type: 
  Country: None (occurrence: None)
  Receive Date: 20120126
  Receipt Date: 20120118
  Transmission Date: 20120608
  Serious: Yes (Hospitalization, Other)
  Sender: FDA-Public Use
  Company Number: PHHY2012BR004681

PATIENT
  Sex: Female

DRUGS (3)
  1. TRILEPTAL [Suspect]
     Indication: TRIGEMINAL NEURALGIA
     Dosage: 300 MG, EACH 12 HOURS
  2. DIOVAN [Concomitant]
     Indication: HYPERTENSION
     Dosage: 1 DF, IN MORNING
     Route: 048
  3. TRILEPTAL [Suspect]
     Dosage: 0.5 DF, EACH 12 HOURS

REACTIONS (6)
  - NEURALGIA [None]
  - HYPOAESTHESIA ORAL [None]
  - GAIT DISTURBANCE [None]
  - FALL [None]
  - DIZZINESS [None]
  - HIP FRACTURE [None]
